FAERS Safety Report 22227282 (Version 1)
Quarter: 2023Q2

REPORT INFORMATION
  Report Type: Report from Study
  Country: US (occurrence: US)
  Receive Date: 20230419
  Receipt Date: 20230419
  Transmission Date: 20230722
  Serious: Yes (Other)
  Sender: FDA-Public Use
  Company Number: US-UCBSA-2023019550

PATIENT
  Sex: Male

DRUGS (1)
  1. LEVETIRACETAM [Suspect]
     Active Substance: LEVETIRACETAM
     Indication: Seizure
     Dosage: 500 MILLIGRAM, 6X/DAY

REACTIONS (3)
  - Colon cancer [Not Recovered/Not Resolved]
  - Neoplasm [Not Recovered/Not Resolved]
  - Chemotherapy [Not Recovered/Not Resolved]
